FAERS Safety Report 4617116-7 (Version None)
Quarter: 2005Q1

REPORT INFORMATION
  Report Type: 
  Country: None (occurrence: None)
  Receive Date: 20050323
  Receipt Date: 20041105
  Transmission Date: 20050727
  Serious: Yes (Hospitalization, Other)
  Sender: FDA-Public Use
  Company Number: US-MERCK-0411USA00928

PATIENT
  Sex: Female

DRUGS (2)
  1. VIOXX [Suspect]
     Route: 048
  2. VIOXX [Suspect]
     Route: 048
     Dates: start: 20010601, end: 20010701

REACTIONS (8)
  - ARTHRALGIA [None]
  - ARTHROPATHY [None]
  - DEVICE FAILURE [None]
  - HIP ARTHROPLASTY [None]
  - JOINT DISLOCATION [None]
  - MIGRATION OF IMPLANT [None]
  - MYOCARDIAL INFARCTION [None]
  - OSTEOARTHRITIS [None]
